FAERS Safety Report 5028946-4 (Version None)
Quarter: 2006Q2

REPORT INFORMATION
  Report Type: 
  Country: None (occurrence: None)
  Receive Date: 20060619
  Receipt Date: 20060612
  Transmission Date: 20061013
  Serious: Yes (Other)
  Sender: FDA-Public Use
  Company Number: 2006AC01110

PATIENT
  Age: 34 Year
  Sex: Female

DRUGS (10)
  1. QUETIAPINE FUMARATE [Suspect]
     Indication: MANIA
     Route: 048
     Dates: start: 20050501
  2. QUETIAPINE FUMARATE [Suspect]
     Indication: PROPHYLAXIS
     Route: 048
     Dates: start: 20050501
  3. QUETIAPINE FUMARATE [Suspect]
     Route: 048
  4. QUETIAPINE FUMARATE [Suspect]
     Route: 048
  5. QUETIAPINE FUMARATE [Suspect]
     Dosage: DOSE TAPERED OFF AT WITHDRAWAL
     Route: 048
  6. QUETIAPINE FUMARATE [Suspect]
     Dosage: DOSE TAPERED OFF AT WITHDRAWAL
     Route: 048
  7. LITHIUM CARBONATE [Concomitant]
     Indication: DEPRESSION
  8. LITHIUM CARBONATE [Concomitant]
     Indication: DELUSION
  9. VENLAFAXINE HCL [Concomitant]
     Indication: DELUSION
  10. VENLAFAXINE HCL [Concomitant]
     Indication: DEPRESSION

REACTIONS (2)
  - DRUG EFFECT DECREASED [None]
  - PHOBIA [None]
